FAERS Safety Report 9145744 (Version 2)
Quarter: 2013Q1

REPORT INFORMATION
  Report Type: Report from Study
  Country: DE (occurrence: DE)
  Receive Date: 20130307
  Receipt Date: 20130319
  Transmission Date: 20140127
  Serious: Yes (Hospitalization)
  Sender: FDA-Public Use
  Company Number: PHHY2013DE021759

PATIENT
  Sex: Female
  Weight: 70 kg

DRUGS (6)
  1. AFINITOR [Suspect]
     Indication: BREAST CANCER METASTATIC
     Dosage: 10 MG, QD
     Route: 048
     Dates: start: 20130212, end: 20130226
  2. EXEMESTANE [Concomitant]
     Indication: BREAST CANCER METASTATIC
     Dosage: 25 MG, QD
     Route: 048
     Dates: start: 20130212, end: 20130224
  3. MCP [Concomitant]
     Dosage: 25 GTT, TID
     Dates: start: 20130219
  4. VALSARTAN [Concomitant]
     Dates: start: 20120206
  5. XELEVIA [Concomitant]
     Dosage: 100 MG, QD
     Dates: start: 20121113
  6. BISPHOSPHONATES [Concomitant]

REACTIONS (4)
  - General physical health deterioration [Not Recovered/Not Resolved]
  - C-reactive protein increased [Not Recovered/Not Resolved]
  - Tachycardia [Not Recovered/Not Resolved]
  - Pyrexia [Not Recovered/Not Resolved]
